FAERS Safety Report 19414015 (Version 7)
Quarter: 2022Q3

REPORT INFORMATION
  Report Type: Spontaneous
  Country: CA (occurrence: CA)
  Receive Date: 20210614
  Receipt Date: 20220712
  Transmission Date: 20221026
  Serious: Yes (Other)
  Sender: FDA-Public Use
  Company Number: CA-GLAXOSMITHKLINE-CA2021AMR122118

PATIENT

DRUGS (3)
  1. ZEJULA [Suspect]
     Active Substance: NIRAPARIB
     Indication: Ovarian epithelial cancer
     Dosage: 200 MG, QD
     Route: 048
     Dates: start: 20210531, end: 20210614
  2. ZEJULA [Suspect]
     Active Substance: NIRAPARIB
     Indication: Fallopian tube cancer
  3. ZEJULA [Suspect]
     Active Substance: NIRAPARIB
     Indication: Peritoneal neoplasm

REACTIONS (15)
  - Neuropathy peripheral [Unknown]
  - Abdominal discomfort [Unknown]
  - Headache [Unknown]
  - Dizziness [Not Recovered/Not Resolved]
  - Fatigue [Unknown]
  - Dyspnoea [Unknown]
  - Nausea [Unknown]
  - Dyskinesia [Unknown]
  - Malaise [Not Recovered/Not Resolved]
  - Paraesthesia [Unknown]
  - Abdominal pain [Unknown]
  - Burning sensation [Unknown]
  - Feeling abnormal [Unknown]
  - Abdominal distension [Unknown]
  - Ill-defined disorder [Not Recovered/Not Resolved]
